FAERS Safety Report 7800885 (Version 6)
Quarter: 2014Q1

REPORT INFORMATION
  Report Type: Spontaneous
  Country: US (occurrence: US)
  Receive Date: 20110207
  Receipt Date: 20140228
  Transmission Date: 20141002
  Serious: Yes (Hospitalization)
  Sender: FDA-Public Use
  Company Number: US-BIOGENIDEC-2011BI003057

PATIENT
  Age: 37 Year
  Sex: Female
  Weight: 90 kg

DRUGS (1)
  1. TYSABRI [Suspect]
     Indication: MULTIPLE SCLEROSIS
     Route: 042
     Dates: start: 20060926

REACTIONS (7)
  - Impaired healing [Not Recovered/Not Resolved]
  - Dysarthria [Unknown]
  - Skin operation [Recovered/Resolved]
  - Wound [Not Recovered/Not Resolved]
  - Tremor [Recovered/Resolved]
  - Hyperhidrosis [Not Recovered/Not Resolved]
  - Bacterial infection [Not Recovered/Not Resolved]
